FAERS Safety Report 25161935 (Version 4)
Quarter: 2025Q2

REPORT INFORMATION
  Report Type: Spontaneous
  Country: US (occurrence: US)
  Receive Date: 20250404
  Receipt Date: 20250513
  Transmission Date: 20250717
  Serious: No
  Sender: PFIZER
  Company Number: US-PFIZER INC-202500065841

PATIENT
  Age: 14 Year
  Sex: Male

DRUGS (3)
  1. GENOTROPIN [Suspect]
     Active Substance: SOMATROPIN
     Indication: Short stature
     Dosage: 1.5 MILLIGRAMS A DAY, ALTERNATING 1.4 AND 1.6 FOR AN AVERAGE OF 1.5
     Route: 058
     Dates: start: 202301
  2. GENOTROPIN [Suspect]
     Active Substance: SOMATROPIN
     Dosage: 1.5 MILLIGRAMS A DAY, ALTERNATING 1.4 AND 1.6 FOR AN AVERAGE OF 1.5
     Route: 058
     Dates: start: 202301
  3. VYVANSE [Concomitant]
     Active Substance: LISDEXAMFETAMINE DIMESYLATE
     Indication: Attention deficit hyperactivity disorder
     Dates: start: 202301

REACTIONS (2)
  - Device power source issue [Unknown]
  - Device information output issue [Unknown]
